FAERS Safety Report 25663989 (Version 2)
Quarter: 2025Q3

REPORT INFORMATION
  Report Type: Spontaneous
  Country: GB (occurrence: GB)
  Receive Date: 20250811
  Receipt Date: 20250819
  Transmission Date: 20251021
  Serious: Yes (Other)
  Sender: TEVA
  Company Number: None

PATIENT

DRUGS (1)
  1. BACLOFEN [Suspect]
     Active Substance: BACLOFEN
     Indication: Hiccups
     Route: 065

REACTIONS (6)
  - Muscle spasms [Unknown]
  - Palpitations [Unknown]
  - Off label use [Unknown]
  - Speech disorder [Unknown]
  - Rash [Unknown]
  - Dyskinesia [Unknown]
